FAERS Safety Report 12827612 (Version 1)
Quarter: 2016Q4

REPORT INFORMATION
  Report Type: Spontaneous
  Country: US (occurrence: US)
  Receive Date: 20161006
  Receipt Date: 20161006
  Transmission Date: 20170207
  Serious: No
  Sender: FDA-Public Use
  Company Number: US-INDIVIOR LIMITED-INDV-092364-2016

PATIENT
  Age: 55 Year
  Sex: Male

DRUGS (2)
  1. BENZODIAZEPINE DERIVATIVES [Suspect]
     Active Substance: BENZODIAZEPINE
     Indication: PRODUCT USED FOR UNKNOWN INDICATION
     Dosage: UNK
     Route: 065
     Dates: end: 201602
  2. SUBOXONE [Suspect]
     Active Substance: BUPRENORPHINE HYDROCHLORIDE\NALOXONE HYDROCHLORIDE
     Indication: PAIN
     Dosage: 8 MG, TID
     Route: 060
     Dates: start: 2014, end: 201601

REACTIONS (11)
  - Insomnia [Recovered/Resolved]
  - Off label use [Recovered/Resolved]
  - Drug withdrawal syndrome [Recovered/Resolved]
  - Unevaluable event [Recovered/Resolved]
  - Intentional product misuse [Recovered/Resolved]
  - Device loosening [Not Recovered/Not Resolved]
  - Intentional underdose [Recovered/Resolved]
  - Nasopharyngitis [Recovered/Resolved]
  - Drug abuse [Recovered/Resolved]
  - Arthralgia [Unknown]
  - Myalgia [Recovered/Resolved]

NARRATIVE: CASE EVENT DATE: 2014
